FAERS Safety Report 8982730 (Version 3)
Quarter: 2013Q1

REPORT INFORMATION
  Report Type: Report from Study
  Country: PL (occurrence: PL)
  Receive Date: 20121221
  Receipt Date: 20130102
  Transmission Date: 20140127
  Serious: Yes (Hospitalization)
  Sender: FDA-Public Use
  Company Number: PL-VERTEX PHARMACEUTICALS INC.-2012-026564

PATIENT
  Age: 55 Year
  Sex: Female
  Weight: 56 kg

DRUGS (10)
  1. VX-950 (TELAPREVIR) [Suspect]
     Indication: HEPATITIS C
     Dosage: 750 MG, TID
     Route: 048
     Dates: start: 20121031
  2. VX-950 (TELAPREVIR) [Suspect]
     Dosage: 750 MG, TID
     Dates: start: 20121127
  3. RIBAVIRINE [Suspect]
     Indication: HEPATITIS C
     Dosage: 600 MG, BID (2 TABLETS IN THE MORNING AND 3 TABLETS IN EVENING)
     Route: 048
     Dates: start: 20121031, end: 20121128
  4. RIBAVIRINE [Suspect]
     Dosage: 600 MG, BID (2 IN THE MORNING AND 1 IN THE EVENING)
     Route: 048
     Dates: start: 20121129, end: 20121129
  5. RIBAVIRINE [Suspect]
     Dosage: 600 MG, BID (1 TABLET IN THE MORNING AND 2 IN THE EVENING)
     Route: 048
     Dates: start: 20121130
  6. RIBAVIRINE [Suspect]
     Dosage: 600 MG, QD (1 TABLET IN THE MORNING AND 2 IN THE EVENING)
     Route: 048
     Dates: start: 201212
  7. PEGINTERFERON ALFA-2A [Suspect]
     Indication: HEPATITIS C
     Dosage: 189 ?G, QW
     Route: 058
     Dates: start: 20121031
  8. VALSARTAN [Concomitant]
     Indication: HYPERTENSION
     Dosage: 160 MG, QD
     Route: 048
  9. HYDROXYZINE [Concomitant]
     Dosage: 25 MG, QD
     Route: 048
     Dates: start: 20121106
  10. HYDROCHLOROTHIAZIDE [Concomitant]
     Indication: HYPERTENSION
     Dosage: 12.5 MG, QD
     Route: 048

REACTIONS (1)
  - Anaemia [Recovered/Resolved]
